FAERS Safety Report 12252622 (Version 1)
Quarter: 2016Q2

REPORT INFORMATION
  Report Type: Spontaneous
  Country: US (occurrence: US)
  Receive Date: 20160411
  Receipt Date: 20160411
  Transmission Date: 20160815
  Serious: No
  Sender: FDA-Public Use
  Company Number: US-ACTAVIS-2016-02115

PATIENT
  Sex: Female
  Weight: 51 kg

DRUGS (5)
  1. AROMASIN [Suspect]
     Active Substance: EXEMESTANE
     Indication: BONE CANCER
     Dosage: 25 MG, DAILY
     Dates: start: 201411
  2. LORAZEPAM ACTAVIS [Concomitant]
     Active Substance: LORAZEPAM
     Indication: SLEEP DISORDER
     Dosage: 0.1 MG, DAILY
     Route: 065
     Dates: start: 2000
  3. CLONIDINE HYDROCHLORIDE (AELLC) [Suspect]
     Active Substance: CLONIDINE HYDROCHLORIDE
     Indication: HOT FLUSH
     Dosage: 0.1 MG, UNK
     Route: 065
     Dates: start: 2000
  4. LORAZEPAM ACTAVIS [Concomitant]
     Active Substance: LORAZEPAM
     Indication: ANXIETY
  5. IBUPROFEN (AMALLC) [Suspect]
     Active Substance: IBUPROFEN
     Indication: PYREXIA
     Dosage: 200 MG, 2/WEEK
     Route: 065

REACTIONS (1)
  - Feeling abnormal [Unknown]
